FAERS Safety Report 8791481 (Version 1)
Quarter: 2012Q4

REPORT INFORMATION
  Report Type: Spontaneous
  Country: US (occurrence: None)
  Receive Date: 20120914
  Receipt Date: 20120914
  Transmission Date: 20130627
  Serious: Yes (Disabling)
  Sender: FDA-Public Use
  Company Number: None

PATIENT
  Age: 54 Year
  Sex: Male
  Weight: 77.57 kg

DRUGS (2)
  1. VIREAD [Suspect]
     Dates: start: 200202
  2. LIPITOR [Suspect]
     Dosage: Lipitor 10 mg QD December 6, 2011 Discontinued Lipitor August 18, 2012 and Discontinued Viread shortly thereafter.
     Dates: start: 20111206, end: 20120818

REACTIONS (2)
  - Neuropathy peripheral [None]
  - Mobility decreased [None]
